FAERS Safety Report 14789157 (Version 1)
Quarter: 2018Q2

REPORT INFORMATION
  Report Type: Spontaneous
  Country: DE (occurrence: DE)
  Receive Date: 20180423
  Receipt Date: 20180423
  Transmission Date: 20180711
  Serious: Yes (Other)
  Sender: FDA-Public Use
  Company Number: PHHY2017DE134708

PATIENT
  Age: 82 Year
  Sex: Female

DRUGS (2)
  1. DIAZOXIDE [Concomitant]
     Active Substance: DIAZOXIDE
     Indication: INSULINOMA
     Dosage: 100 MG, TID
     Route: 065
  2. OCTREOTIDE. [Suspect]
     Active Substance: OCTREOTIDE
     Indication: INSULINOMA
     Dosage: 0.1 MG, BID
     Route: 058

REACTIONS (2)
  - Fluid retention [Unknown]
  - Recurrent cancer [Unknown]
